FAERS Safety Report 25000272 (Version 3)
Quarter: 2025Q1

REPORT INFORMATION
  Report Type: Spontaneous
  Country: US (occurrence: US)
  Receive Date: 20250222
  Receipt Date: 20250331
  Transmission Date: 20250409
  Serious: Yes (Other)
  Sender: SANOFI AVENTIS
  Company Number: US-SA-2025SA049599

PATIENT
  Age: 58 Year
  Sex: Male

DRUGS (1)
  1. DUPIXENT [Suspect]
     Active Substance: DUPILUMAB
     Indication: Eosinophilic oesophagitis
     Dosage: 300 MG, QW
     Route: 058
     Dates: start: 20241115

REACTIONS (7)
  - Oesophageal food impaction [Recovered/Resolved]
  - Vomiting [Recovering/Resolving]
  - Cough [Recovered/Resolved]
  - Nasal congestion [Recovered/Resolved]
  - Dysphagia [Recovered/Resolved]
  - Nasopharyngitis [Recovered/Resolved]
  - Injection site erythema [Recovered/Resolved]

NARRATIVE: CASE EVENT DATE: 20240101
